FAERS Safety Report 25185621 (Version 1)
Quarter: 2025Q2

REPORT INFORMATION
  Report Type: Spontaneous
  Country: BE (occurrence: BE)
  Receive Date: 20250410
  Receipt Date: 20250410
  Transmission Date: 20250716
  Serious: Yes (Disabling)
  Sender: INSUD PHARMA
  Company Number: None

PATIENT
  Age: 37 Year
  Sex: Female
  Weight: 64 kg

DRUGS (4)
  1. DROSPIRENONE [Suspect]
     Active Substance: DROSPIRENONE
     Indication: Premenstrual syndrome
     Route: 048
     Dates: start: 20250227, end: 20250315
  2. DROSPIRENONE [Suspect]
     Active Substance: DROSPIRENONE
     Indication: Mood swings
  3. DROSPIRENONE [Suspect]
     Active Substance: DROSPIRENONE
     Indication: Migraine
  4. DROSPIRENONE [Suspect]
     Active Substance: DROSPIRENONE
     Indication: Ovulation pain

REACTIONS (6)
  - Pain [Recovered/Resolved]
  - Arthralgia [Recovered/Resolved]
  - Thirst [Recovered/Resolved]
  - Dry mouth [Recovered/Resolved]
  - Depression [Recovered/Resolved]
  - Heavy menstrual bleeding [Recovered/Resolved]

NARRATIVE: CASE EVENT DATE: 20250227
